FAERS Safety Report 8962993 (Version 3)
Quarter: 2013Q1

REPORT INFORMATION
  Report Type: Spontaneous
  Country: AU (occurrence: None)
  Receive Date: 20121205
  Receipt Date: 20130220
  Transmission Date: 20140127
  Serious: Yes (Life-Threatening, Hospitalization, Other)
  Sender: FDA-Public Use
  Company Number: ADR-2012-02176

PATIENT
  Sex: Female

DRUGS (2)
  1. BACLOFEN INTRATHECAL [Suspect]
     Dosage: 680 MCG / DAY
  2. MORPHINE TARTATE 5.75 MG/ML  INTRATHECAL [Concomitant]

REACTIONS (7)
  - Drug dispensing error [None]
  - Malaise [None]
  - Pneumonia aspiration [None]
  - Somnolence [None]
  - Wrong drug administered [None]
  - Drug dispensing error [None]
  - Documented hypersensitivity to administered drug [None]
